FAERS Safety Report 9058358 (Version 1)
Quarter: 2013Q1

REPORT INFORMATION
  Report Type: Spontaneous
  Country: DK (occurrence: DK)
  Receive Date: 20130211
  Receipt Date: 20130211
  Transmission Date: 20140127
  Serious: Yes (Life-Threatening, Hospitalization)
  Sender: FDA-Public Use
  Company Number: DK-JNJFOC-20130202610

PATIENT
  Age: 74 None
  Sex: Male
  Weight: 90 kg

DRUGS (2)
  1. XARELTO [Suspect]
     Indication: KNEE ARTHROPLASTY
     Route: 048
     Dates: start: 20130117
  2. XARELTO [Suspect]
     Indication: THROMBOSIS PROPHYLAXIS
     Route: 048
     Dates: start: 20130117

REACTIONS (2)
  - Pulmonary embolism [Unknown]
  - Drug ineffective [Unknown]
